FAERS Safety Report 11794678 (Version 3)
Quarter: 2015Q4

REPORT INFORMATION
  Report Type: Spontaneous
  Country: US (occurrence: US)
  Receive Date: 20151202
  Receipt Date: 20151228
  Transmission Date: 20160305
  Serious: Yes (Hospitalization, Other)
  Sender: FDA-Public Use
  Company Number: US-SMITH AND NEPHEW, INC-2015SMT00557

PATIENT
  Age: 64 Year
  Sex: Male
  Weight: 126.53 kg

DRUGS (2)
  1. UNSPECIFIED MEDICATIONS [Concomitant]
     Active Substance: UNSPECIFIED INGREDIENT
  2. REGRANEX [Suspect]
     Active Substance: BECAPLERMIN
     Indication: WOUND
     Dosage: UNK UNK, 1X/DAY
     Route: 061
     Dates: start: 20150901, end: 20151112

REACTIONS (3)
  - Enterococcus test positive [Unknown]
  - Drug effect incomplete [Unknown]
  - Application site infection [Recovering/Resolving]

NARRATIVE: CASE EVENT DATE: 201511
